FAERS Safety Report 10069222 (Version 1)
Quarter: 2014Q2

REPORT INFORMATION
  Report Type: Spontaneous
  Country: US (occurrence: US)
  Receive Date: 20140409
  Receipt Date: 20140409
  Transmission Date: 20141212
  Serious: No
  Sender: FDA-Public Use
  Company Number: US-ASTELLAS-2013US010217

PATIENT
  Age: 22 Year
  Sex: Female

DRUGS (1)
  1. PROTOPIC [Suspect]
     Indication: PRODUCT USED FOR UNKNOWN INDICATION
     Dosage: APPLY TO BOTH EYES
     Route: 047

REACTIONS (1)
  - Drug prescribing error [Unknown]
